FAERS Safety Report 9823435 (Version 2)
Quarter: 2014Q1

REPORT INFORMATION
  Report Type: Spontaneous
  Country: US (occurrence: US)
  Receive Date: 20140116
  Receipt Date: 20140116
  Transmission Date: 20141002
  Serious: No
  Sender: FDA-Public Use
  Company Number: US-GILEAD-2011-0035103

PATIENT
  Sex: Female

DRUGS (1)
  1. LETAIRIS [Suspect]
     Indication: PULMONARY HYPERTENSION
     Route: 048
     Dates: start: 20091217

REACTIONS (8)
  - Back pain [Unknown]
  - Fall [Unknown]
  - Contusion [Unknown]
  - Cardiac discomfort [Unknown]
  - Fatigue [Unknown]
  - Mass [Unknown]
  - Stress [Unknown]
  - Insomnia [Unknown]
